FAERS Safety Report 24601714 (Version 1)
Quarter: 2024Q4

REPORT INFORMATION
  Report Type: Spontaneous
  Country: BG (occurrence: BG)
  Receive Date: 20241111
  Receipt Date: 20241111
  Transmission Date: 20250115
  Serious: Yes (Hospitalization, Other)
  Sender: EPIC PHARM
  Company Number: BG-EPICPHARMA-BG-2024EPCLIT01390

PATIENT
  Age: 87 Year
  Sex: Female

DRUGS (7)
  1. LISINOPRIL AND HYDROCHLOROTHIAZIDE [Suspect]
     Active Substance: HYDROCHLOROTHIAZIDE\LISINOPRIL
     Indication: Hypertension
     Route: 065
  2. LISINOPRIL AND HYDROCHLOROTHIAZIDE [Suspect]
     Active Substance: HYDROCHLOROTHIAZIDE\LISINOPRIL
     Route: 065
  3. PROPAFENONE [Suspect]
     Active Substance: PROPAFENONE
     Indication: Hypertension
     Route: 065
  4. BISOPROLOL [Suspect]
     Active Substance: BISOPROLOL\BISOPROLOL FUMARATE
     Indication: Hypertension
     Route: 065
  5. CARBAMAZEPINE [Concomitant]
     Active Substance: CARBAMAZEPINE
     Indication: Trigeminal neuralgia
     Route: 065
  6. BENFOTIAMINE;PYRIDOXINE HYDROCHLORIDE [Concomitant]
     Indication: Trigeminal neuralgia
     Route: 065
  7. CYANOCOBALAMIN [Concomitant]
     Active Substance: CYANOCOBALAMIN
     Indication: Trigeminal neuralgia
     Route: 065

REACTIONS (3)
  - Basal cell carcinoma [Recovering/Resolving]
  - Keratoacanthoma [Recovering/Resolving]
  - Squamous cell carcinoma [Recovering/Resolving]
